FAERS Safety Report 5983751-7 (Version None)
Quarter: 2008Q4

REPORT INFORMATION
  Report Type: 
  Country: None (occurrence: None)
  Receive Date: 20081126
  Receipt Date: 20080630
  Transmission Date: 20090506
  Serious: Yes (Hospitalization)
  Sender: FDA-Public Use
  Company Number: 2008BH006584

PATIENT
  Age: 51 Year
  Sex: Male

DRUGS (14)
  1. DIANEAL [Suspect]
     Indication: PERITONEAL DIALYSIS
     Dosage: IP
     Route: 033
  2. CALTRATE [Concomitant]
  3. METOPROLOL TARTRATE [Concomitant]
  4. MULTI-VITAMIN [Concomitant]
  5. NEXIUM [Concomitant]
  6. CARAFATE [Concomitant]
  7. EPOGEN [Concomitant]
  8. INSULIN [Concomitant]
  9. HUMALOG [Concomitant]
  10. HUMULIN N [Concomitant]
  11. ASPIRIN [Concomitant]
  12. VALSARTAN [Concomitant]
  13. REGLAN [Concomitant]
  14. AMLODIPINE BESYLATE [Concomitant]

REACTIONS (1)
  - PERITONITIS [None]
